FAERS Safety Report 17078049 (Version 1)
Quarter: 2019Q4

REPORT INFORMATION
  Report Type: Spontaneous
  Country: US (occurrence: US)
  Receive Date: 20191126
  Receipt Date: 20191126
  Transmission Date: 20200122
  Serious: Yes (Disabling, Other)
  Sender: FDA-Public Use
  Company Number: US-REGENERON PHARMACEUTICALS, INC.-2019-67796

PATIENT

DRUGS (2)
  1. EYLEA [Suspect]
     Active Substance: AFLIBERCEPT
     Indication: NEOVASCULAR AGE-RELATED MACULAR DEGENERATION
     Dosage: 2 MG TO LEFT EYE EVERY 5 WEEKS
     Route: 031
     Dates: start: 201412
  2. EYLEA [Suspect]
     Active Substance: AFLIBERCEPT
     Dosage: 2 MG TO LEFT EYE EVERY 5 WEEKS
     Route: 031
     Dates: start: 20191105, end: 20191105

REACTIONS (3)
  - Wrong technique in product usage process [Unknown]
  - Blindness unilateral [Not Recovered/Not Resolved]
  - Toxic anterior segment syndrome [Recovering/Resolving]

NARRATIVE: CASE EVENT DATE: 20191105
